FAERS Safety Report 16763337 (Version 1)
Quarter: 2019Q3

REPORT INFORMATION
  Report Type: Spontaneous
  Country: US (occurrence: US)
  Receive Date: 20190902
  Receipt Date: 20190902
  Transmission Date: 20191005
  Serious: No
  Sender: FDA-Public Use
  Company Number: US-TEVA-2019-US-1102448

PATIENT
  Sex: Female

DRUGS (2)
  1. CLONAZEPAM. [Suspect]
     Active Substance: CLONAZEPAM
     Indication: SEIZURE
     Dosage: 1 MG; SPLITS INTO HALF AND TAKES 0.5 MG
     Route: 065
  2. CLONAZEPAM. [Suspect]
     Active Substance: CLONAZEPAM
     Indication: ANXIETY

REACTIONS (7)
  - Tinnitus [Unknown]
  - Feeling abnormal [Unknown]
  - Drug ineffective [Unknown]
  - Migraine [Unknown]
  - Product substitution issue [Unknown]
  - Nervousness [Unknown]
  - Palpitations [Unknown]
